FAERS Safety Report 22146712 (Version 2)
Quarter: 2023Q1

REPORT INFORMATION
  Report Type: Report from Study
  Country: US (occurrence: US)
  Receive Date: 20230328
  Receipt Date: 20230330
  Transmission Date: 20230418
  Serious: No
  Sender: FDA-Public Use
  Company Number: US-002147023-NVSC2023US066112

PATIENT
  Age: 59 Year
  Sex: Female

DRUGS (1)
  1. KESIMPTA [Suspect]
     Active Substance: OFATUMUMAB
     Indication: Multiple sclerosis
     Dosage: UNK
     Route: 058

REACTIONS (9)
  - Injection site mass [Recovered/Resolved with Sequelae]
  - Injection site reaction [Recovered/Resolved with Sequelae]
  - Injection site pruritus [Recovered/Resolved with Sequelae]
  - Peripheral swelling [Unknown]
  - Pain [Unknown]
  - Pyrexia [Unknown]
  - Feeling hot [Unknown]
  - Night sweats [Unknown]
  - Headache [Unknown]

NARRATIVE: CASE EVENT DATE: 20230316
